FAERS Safety Report 21362431 (Version 1)
Quarter: 2022Q3

REPORT INFORMATION
  Report Type: Spontaneous
  Country: GB (occurrence: None)
  Receive Date: 20220922
  Receipt Date: 20220922
  Transmission Date: 20221027
  Serious: No
  Sender: FDA-Public Use
  Company Number: GB-ROCHE-3184243

PATIENT
  Age: 30 Year
  Sex: Female

DRUGS (1)
  1. OCREVUS [Suspect]
     Active Substance: OCRELIZUMAB
     Indication: Multiple sclerosis
     Route: 041
     Dates: start: 20220118

REACTIONS (3)
  - Vulvovaginal candidiasis [Not Recovered/Not Resolved]
  - Sinusitis [Recovered/Resolved]
  - White blood cells urine positive [Unknown]

NARRATIVE: CASE EVENT DATE: 20220601
